FAERS Safety Report 21223613 (Version 1)
Quarter: 2022Q3

REPORT INFORMATION
  Report Type: Spontaneous
  Country: PL (occurrence: PL)
  Receive Date: 20220817
  Receipt Date: 20220817
  Transmission Date: 20221026
  Serious: Yes (Hospitalization, Other)
  Sender: FDA-Public Use
  Company Number: PL-BIOGEN-2022BI01124914

PATIENT
  Age: 16 Year
  Sex: Female

DRUGS (2)
  1. METHYLPREDNISOLONE [Suspect]
     Active Substance: METHYLPREDNISOLONE
     Route: 065
     Dates: start: 202204
  2. TECFIDERA [Suspect]
     Active Substance: DIMETHYL FUMARATE
     Route: 048
     Dates: start: 20220510

REACTIONS (8)
  - Hypertransaminasaemia [Unknown]
  - Gamma-glutamyltransferase increased [Unknown]
  - Jaundice [Unknown]
  - Pruritus [Unknown]
  - Vomiting [Unknown]
  - Abdominal pain [Unknown]
  - Epstein-Barr virus infection [Unknown]
  - Nausea [Unknown]

NARRATIVE: CASE EVENT DATE: 20220512
